FAERS Safety Report 9958024 (Version 1)
Quarter: 2014Q1

REPORT INFORMATION
  Report Type: Report from Study
  Country: US (occurrence: US)
  Receive Date: 20140304
  Receipt Date: 20140304
  Transmission Date: 20141002
  Serious: No
  Sender: FDA-Public Use
  Company Number: US-ABBVIE-13P-163-1093922-00

PATIENT
  Sex: Male

DRUGS (26)
  1. HUMIRA [Suspect]
     Indication: CROHN^S DISEASE
     Dates: start: 20130515
  2. LANTUS [Concomitant]
     Indication: PRODUCT USED FOR UNKNOWN INDICATION
     Dosage: 20 UNITS DAILY
  3. LISINOPRIL [Concomitant]
     Indication: PRODUCT USED FOR UNKNOWN INDICATION
     Dosage: 10MG DAILY
  4. TRILIPIX [Concomitant]
     Indication: HYPERCHOLESTEROLAEMIA
     Dosage: 135MG DAILY
  5. ASA [Concomitant]
     Indication: PRODUCT USED FOR UNKNOWN INDICATION
  6. SYNTHROID [Concomitant]
     Indication: PRODUCT USED FOR UNKNOWN INDICATION
     Dosage: 225MCG DAILY
  7. TRAZADONE [Concomitant]
     Indication: SLEEP DISORDER THERAPY
     Dosage: AT NIGHT
  8. LYRICA [Concomitant]
     Indication: NEUROPATHY PERIPHERAL
  9. COREG [Concomitant]
     Indication: CARDIAC FAILURE CONGESTIVE
  10. POTASSIUM CHLORIDE [Concomitant]
     Indication: PRODUCT USED FOR UNKNOWN INDICATION
  11. LASIX [Concomitant]
     Indication: PRODUCT USED FOR UNKNOWN INDICATION
  12. OMEPRAZOLE [Concomitant]
     Indication: PRODUCT USED FOR UNKNOWN INDICATION
     Dosage: 20MG DAILY
  13. HUMIRIN R INSULIN [Concomitant]
     Indication: PRODUCT USED FOR UNKNOWN INDICATION
  14. PROMETHAZINE [Concomitant]
     Indication: NAUSEA
     Dosage: EVERY 4-6 HOURS AS NEEDED, USED TO TAKE 3 TIMES A DAY
  15. CLONOPIN [Concomitant]
     Indication: SLEEP DISORDER
     Dosage: 1 OR 2 AT BEDTIME
  16. ADVAIR [Concomitant]
     Indication: PRODUCT USED FOR UNKNOWN INDICATION
     Dosage: 100/50 ONE PUFF TWICE A DAY
  17. ATROVENT [Concomitant]
     Indication: CHRONIC OBSTRUCTIVE PULMONARY DISEASE
  18. B12 [Concomitant]
     Indication: PRODUCT USED FOR UNKNOWN INDICATION
     Dosage: 1000MG DAILY
  19. ROBINAL FORTE [Concomitant]
     Indication: ABDOMINAL PAIN UPPER
  20. ROBINAL FORTE [Concomitant]
     Indication: PAIN
  21. ROBINAL FORTE [Concomitant]
     Indication: DIARRHOEA
  22. FLINTSTONE VITAMINS [Concomitant]
     Indication: PRODUCT USED FOR UNKNOWN INDICATION
  23. FENTANYL PATCH [Concomitant]
     Indication: PAIN
  24. FENTANYL PATCH [Concomitant]
     Indication: NEUROPATHY PERIPHERAL
  25. FENTANYL PATCH [Concomitant]
     Indication: RHEUMATOID ARTHRITIS
  26. MERCAPTOPURINE [Concomitant]
     Indication: PRODUCT USED FOR UNKNOWN INDICATION
     Dosage: ONLY TAKES 0.5 TABLET TWICE A DAY BECAUSE OF SEVERE HEADACHES

REACTIONS (3)
  - Arthritis [Unknown]
  - Herpes zoster [Not Recovered/Not Resolved]
  - Crohn^s disease [Unknown]
